FAERS Safety Report 5449371-8 (Version None)
Quarter: 2007Q3

REPORT INFORMATION
  Report Type: 
  Country: None (occurrence: None)
  Receive Date: 20070911
  Receipt Date: 20070830
  Transmission Date: 20080115
  Serious: Yes (Hospitalization)
  Sender: FDA-Public Use
  Company Number: PFIZER INC-2007070382

PATIENT
  Sex: Male
  Weight: 52.6 kg

DRUGS (1)
  1. SU-011,248 [Suspect]
     Indication: NASOPHARYNGEAL CANCER
     Route: 048

REACTIONS (1)
  - SINUSITIS [None]
